FAERS Safety Report 4368736-9 (Version None)
Quarter: 2004Q2

REPORT INFORMATION
  Report Type: 
  Country: None (occurrence: None)
  Receive Date: 20040528
  Receipt Date: 20040519
  Transmission Date: 20050107
  Serious: Yes (Hospitalization)
  Sender: FDA-Public Use
  Company Number: 2004019639

PATIENT
  Age: 66 Year
  Sex: Female

DRUGS (3)
  1. LIPITOR [Suspect]
     Indication: HYPERCHOLESTEROLAEMIA
     Dosage: 5 - 10 MG, (1 IN 1 D), ORAL
     Route: 048
     Dates: start: 20011001, end: 20040223
  2. LIPITOR [Suspect]
     Indication: HYPERCHOLESTEROLAEMIA
     Dosage: 5 - 10 MG, (1 IN 1 D), ORAL
     Route: 048
     Dates: start: 20040224, end: 20040225
  3. CANDESARTAN CILEXETIL (CANDESARTAN CILEXETIL) [Concomitant]

REACTIONS (8)
  - ABDOMINAL HERNIA [None]
  - ABNORMAL SENSATION IN EYE [None]
  - BLOOD CHOLESTEROL INCREASED [None]
  - EYE PAIN [None]
  - INCISIONAL HERNIA [None]
  - LACRIMATION INCREASED [None]
  - LOW DENSITY LIPOPROTEIN INCREASED [None]
  - SEASONAL ALLERGY [None]
